FAERS Safety Report 6099639-X (Version None)
Quarter: 2009Q1

REPORT INFORMATION
  Report Type: 
  Country: None (occurrence: None)
  Receive Date: 20090303
  Receipt Date: 20090129
  Transmission Date: 20090719
  Serious: No
  Sender: FDA-Public Use
  Company Number: US-BAYER-200814388BCC

PATIENT
  Age: 56 Year
  Sex: Female
  Weight: 73 kg

DRUGS (7)
  1. ALEVE [Suspect]
     Indication: PAIN
     Dosage: TOTAL DAILY DOSE: 440 MG  UNIT DOSE: 220 MG
     Dates: start: 20050101
  2. ALEVE [Suspect]
     Indication: PAIN
  3. PAROXETINE HCL [Concomitant]
  4. NEXIUM [Concomitant]
  5. VYTORIN [Concomitant]
  6. METOPROLOL TARTRATE [Concomitant]
  7. TAMOXIFEN CITRATE [Concomitant]
     Dates: start: 20030101, end: 20081201

REACTIONS (3)
  - CONTUSION [None]
  - INCREASED TENDENCY TO BRUISE [None]
  - VASCULAR RUPTURE [None]
